APPROVED DRUG PRODUCT: ACETOHEXAMIDE
Active Ingredient: ACETOHEXAMIDE
Strength: 250MG
Dosage Form/Route: TABLET;ORAL
Application: A071893 | Product #001
Applicant: WATSON LABORATORIES INC AN INDIRECT WHOLLY OWNED SUB OF TEVA PHARMACEUTICALS USA INC
Approved: Nov 25, 1987 | RLD: No | RS: No | Type: DISCN